FAERS Safety Report 6540380-4 (Version None)
Quarter: 2010Q1

REPORT INFORMATION
  Report Type: 
  Country: None (occurrence: None)
  Receive Date: 20100115
  Receipt Date: 20100107
  Transmission Date: 20100710
  Serious: Yes (Life-Threatening)
  Sender: FDA-Public Use
  Company Number: BR-GILEAD-2010-0026269

PATIENT
  Sex: Male

DRUGS (4)
  1. EMTRICITABINE/TENOFOVIR DISOPROXIL FUMARATE [Suspect]
     Indication: HIV INFECTION
     Route: 048
     Dates: start: 20080617, end: 20091228
  2. EFAVIRENZ [Concomitant]
     Indication: HIV INFECTION
     Route: 048
     Dates: start: 20080617, end: 20091228
  3. ENALAPRIL [Concomitant]
     Indication: HYPERTENSION
     Dates: end: 20091229
  4. SALYCILIC ACID [Concomitant]
     Indication: CARDIOVASCULAR EVENT PROPHYLAXIS
     Dates: end: 20091229

REACTIONS (3)
  - HEPATIC ENZYME INCREASED [None]
  - HEPATITIS A [None]
  - NEUTROPENIA [None]
